FAERS Safety Report 5306891-4 (Version None)
Quarter: 2007Q2

REPORT INFORMATION
  Report Type: 
  Country: None (occurrence: None)
  Receive Date: 20070425
  Receipt Date: 20070415
  Transmission Date: 20071010
  Serious: Yes (Other)
  Sender: FDA-Public Use
  Company Number: PHEH2007US05595

PATIENT
  Sex: Male

DRUGS (1)
  1. ZELNORM [Suspect]
     Route: 048

REACTIONS (2)
  - ANGIOPATHY [None]
  - DYSPEPSIA [None]
